FAERS Safety Report 4928687-5 (Version None)
Quarter: 2006Q1

REPORT INFORMATION
  Report Type: 
  Country: None (occurrence: None)
  Receive Date: 20060301
  Receipt Date: 20060102
  Transmission Date: 20060701
  Serious: Yes (Hospitalization)
  Sender: FDA-Public Use
  Company Number: FR-ABBOTT-06P-056-0321252-00

PATIENT
  Age: 42 Year
  Sex: Male
  Weight: 65 kg

DRUGS (7)
  1. HUMIRA [Suspect]
     Indication: POLYARTHRITIS
     Route: 058
     Dates: start: 20030101
  2. ALENDRONATE MONOSODIC [Suspect]
     Indication: POLYARTHRITIS
     Route: 048
     Dates: start: 19980101
  3. ALENDRONATE MONOSODIC [Suspect]
     Indication: OSTEOPOROSIS
  4. PREDNISONE [Suspect]
     Indication: POLYARTHRITIS
     Route: 048
     Dates: start: 19860101
  5. RISEDRONATE MONOSODIQUE [Concomitant]
     Indication: OSTEOPOROSIS
     Dates: end: 19980101
  6. METHOTREXATE [Concomitant]
     Indication: DRUG USE FOR UNKNOWN INDICATION
     Dates: start: 19980101, end: 20010101
  7. AUROTIOPROL [Concomitant]
     Indication: POLYARTHRITIS
     Dates: start: 20010101, end: 20030101

REACTIONS (3)
  - BONE DISORDER [None]
  - FEMUR FRACTURE [None]
  - PSEUDARTHROSIS [None]
